FAERS Safety Report 15477069 (Version 2)
Quarter: 2022Q1

REPORT INFORMATION
  Report Type: Report from Study
  Country: BR (occurrence: BR)
  Receive Date: 20181009
  Receipt Date: 20220228
  Transmission Date: 20220423
  Serious: Yes (Other)
  Sender: FDA-Public Use
  Company Number: BR-TEVA-2018-BR-961446

PATIENT
  Age: 54 Year
  Sex: Male

DRUGS (1)
  1. LAMOTRIGINE [Suspect]
     Active Substance: LAMOTRIGINE
     Indication: Seizure
     Route: 065

REACTIONS (2)
  - Hypogammaglobulinaemia [Recovered/Resolved]
  - Pneumonia [Recovered/Resolved]
